FAERS Safety Report 4277232-9 (Version None)
Quarter: 2004Q1

REPORT INFORMATION
  Report Type: 
  Country: None (occurrence: None)
  Receive Date: 20040120
  Receipt Date: 20040109
  Transmission Date: 20041129
  Serious: Yes (Life-Threatening, Hospitalization)
  Sender: FDA-Public Use
  Company Number: 2004PK00042

PATIENT
  Age: 72 Year
  Sex: Female
  Weight: 49 kg

DRUGS (12)
  1. METOPROLOL SUCCINATE [Suspect]
     Indication: ATRIAL FIBRILLATION
     Dosage: 50 MG DAILY PO
     Route: 048
     Dates: start: 20031121, end: 20031201
  2. TAMBOCOR [Suspect]
     Indication: ATRIAL FIBRILLATION
     Dosage: 100 MG BID PO
     Route: 048
     Dates: start: 20031121, end: 20031201
  3. RYTOMONORM [Concomitant]
  4. AGOPTON [Concomitant]
  5. DOXIUM [Concomitant]
  6. ULCOGANT [Concomitant]
  7. SINTROM [Concomitant]
  8. DUOFER [Concomitant]
  9. VITIRON [Concomitant]
  10. INDERAL [Concomitant]
  11. LASIX [Concomitant]
  12. FLAGYL [Concomitant]

REACTIONS (6)
  - CARDIO-RESPIRATORY ARREST [None]
  - DRUG LEVEL INCREASED [None]
  - ELECTROCARDIOGRAM QT PROLONGED [None]
  - SYNCOPE [None]
  - TORSADE DE POINTES [None]
  - VENTRICULAR TACHYCARDIA [None]
